FAERS Safety Report 7030615 (Version 2)
Quarter: 2014Q1

REPORT INFORMATION
  Report Type: Spontaneous
  Country: US (occurrence: US)
  Receive Date: 20090623
  Receipt Date: 20140129
  Transmission Date: 20141002
  Serious: Yes (Disabling, Other)
  Sender: FDA-Public Use
  Company Number: US-ASTRAZENECA-2009UW08642

PATIENT
  Age: 56 Year
  Sex: Female
  Weight: 81.6 kg

DRUGS (11)
  1. PULMICORT FLEXHALER [Suspect]
     Indication: ASTHMA
     Route: 055
     Dates: start: 20080406
  2. NEXIUM [Suspect]
     Indication: GASTROOESOPHAGEAL REFLUX DISEASE
     Route: 048
     Dates: start: 2004, end: 201309
  3. PRILOSEC DELAYED-RELEASE [Suspect]
     Indication: GASTROOESOPHAGEAL REFLUX DISEASE
     Route: 048
  4. PRILOSEC OTC [Suspect]
     Indication: GASTROOESOPHAGEAL REFLUX DISEASE
     Route: 048
     Dates: start: 201309
  5. HYDROCHLOROTHIAZIDE [Concomitant]
     Indication: HYPERTENSION
     Route: 048
     Dates: start: 2008
  6. HYDROCHLOROTHIAZIDE [Concomitant]
     Indication: FLUID RETENTION
     Route: 048
     Dates: start: 2008
  7. XANAX [Concomitant]
     Indication: ANXIETY
  8. ASTELIN [Concomitant]
     Indication: NASAL DISCOMFORT
  9. KARAFATE [Concomitant]
     Indication: GASTROOESOPHAGEAL REFLUX DISEASE
     Route: 048
     Dates: start: 201311
  10. PROPRANOLOL [Concomitant]
     Indication: MIGRAINE PROPHYLAXIS
     Route: 048
     Dates: start: 2010
  11. DIAZEPAM [Concomitant]
     Indication: ANXIETY
     Dosage: 1/2 TAB IN AM 1/2 TA
     Route: 048
     Dates: start: 2012

REACTIONS (10)
  - Multiple sclerosis [Unknown]
  - Foot fracture [Unknown]
  - Vascular injury [Unknown]
  - Vomiting [Unknown]
  - Abdominal pain [Unknown]
  - Gastrooesophageal reflux disease [Unknown]
  - Chest discomfort [Unknown]
  - Breast discomfort [Unknown]
  - Intentional drug misuse [Unknown]
  - Drug ineffective [Unknown]
